FAERS Safety Report 12526543 (Version 1)
Quarter: 2016Q3

REPORT INFORMATION
  Report Type: Spontaneous
  Country: CN (occurrence: CN)
  Receive Date: 20160705
  Receipt Date: 20160705
  Transmission Date: 20161109
  Serious: Yes (Congenital Anomaly)
  Sender: FDA-Public Use
  Company Number: PHHY2016CN087293

PATIENT
  Sex: Female
  Weight: 3.1 kg

DRUGS (1)
  1. SEBIVO [Suspect]
     Active Substance: TELBIVUDINE
     Indication: HEPATITIS B
     Dosage: MATERNAL DOSE: 1 DF, QD (MATERNAL TREATMENT ONGOING)
     Route: 064

REACTIONS (4)
  - Anal sphincter atony [Unknown]
  - Cerebral disorder [Unknown]
  - Cleft palate [Unknown]
  - Foetal exposure during pregnancy [Unknown]
